FAERS Safety Report 20167233 (Version 1)
Quarter: 2021Q4

REPORT INFORMATION
  Report Type: Spontaneous
  Country: US (occurrence: US)
  Receive Date: 20211209
  Receipt Date: 20211209
  Transmission Date: 20220304
  Serious: No
  Sender: FDA-Public Use
  Company Number: US-JUBILANT CADISTA PHARMACEUTICALS-2020JUB00358

PATIENT
  Age: 82 Year
  Sex: Male
  Weight: 83.9 kg

DRUGS (10)
  1. METHYLPREDNISOLONE [Suspect]
     Active Substance: METHYLPREDNISOLONE
     Indication: Blood test abnormal
     Dosage: 24 MG (6 PILLS TOTAL)
     Route: 048
     Dates: start: 20201202, end: 20201202
  2. METHYLPREDNISOLONE [Suspect]
     Active Substance: METHYLPREDNISOLONE
     Dosage: 20 MG (5 PILLS TOTAL)
     Route: 048
     Dates: start: 20201203, end: 20201203
  3. METHYLPREDNISOLONE [Suspect]
     Active Substance: METHYLPREDNISOLONE
     Dosage: 16 MG (4 PILLS TOTAL)
     Route: 048
     Dates: start: 20201204, end: 20201204
  4. METHYLPREDNISOLONE [Suspect]
     Active Substance: METHYLPREDNISOLONE
     Dosage: 12 MG (3 PILLS TOTAL)
     Route: 048
     Dates: start: 20201205, end: 20201205
  5. METHYLPREDNISOLONE [Suspect]
     Active Substance: METHYLPREDNISOLONE
     Dosage: 8 MG (2 PILLS TOTAL)
     Route: 048
     Dates: start: 20201206, end: 20201206
  6. METHYLPREDNISOLONE [Suspect]
     Active Substance: METHYLPREDNISOLONE
     Dosage: 4 MG (1 PILL TOTAL)
     Route: 048
     Dates: start: 20201207, end: 20201207
  7. MULTAQ [Concomitant]
     Active Substance: DRONEDARONE
  8. ELIQUIS [Concomitant]
     Active Substance: APIXABAN
  9. ALFUSZOSIN [Concomitant]
  10. XYREM [Concomitant]
     Active Substance: SODIUM OXYBATE

REACTIONS (1)
  - Sciatica [Recovering/Resolving]

NARRATIVE: CASE EVENT DATE: 20201203
